FAERS Safety Report 9371638 (Version 2)
Quarter: 2013Q3

REPORT INFORMATION
  Report Type: Spontaneous
  Country: US (occurrence: US)
  Receive Date: 20130627
  Receipt Date: 20130927
  Transmission Date: 20140515
  Serious: Yes (Hospitalization)
  Sender: FDA-Public Use
  Company Number: US-MYLANLABS-2013S1013406

PATIENT
  Age: 42 Year
  Sex: Male

DRUGS (4)
  1. TENOFOVIR [Suspect]
     Indication: HIV INFECTION
     Route: 065
  2. ABACAVIR [Suspect]
     Indication: HIV INFECTION
     Route: 065
  3. EFAVIRENZ [Concomitant]
     Indication: HIV INFECTION
     Dosage: TIME INTERVAL BETWEEN BEGINNING OF DRUG ADMINISTRATION AND START OF EVENT: 5 DAYS
     Route: 065
  4. EMTRICITABINE [Concomitant]
     Indication: HIV INFECTION
     Dosage: TIME INTERVAL BETWEEN BEGINNING OF DRUG ADMINISTRATION AND START OF EVENT: 5 DAYS
     Route: 065

REACTIONS (2)
  - Rhabdomyolysis [Recovered/Resolved]
  - Renal failure acute [Recovered/Resolved]
